FAERS Safety Report 10989198 (Version 2)
Quarter: 2015Q2

REPORT INFORMATION
  Report Type: Spontaneous
  Country: US (occurrence: US)
  Receive Date: 20150406
  Receipt Date: 20150414
  Transmission Date: 20150821
  Serious: Yes (Death, Other)
  Sender: FDA-Public Use
  Company Number: US-AUROBINDO-AUR-APU-2015-02811

PATIENT
  Age: 29 Year
  Sex: Male
  Weight: 119 kg

DRUGS (2)
  1. AMOXICILLIN TABLETS USP 875 MG [Suspect]
     Active Substance: AMOXICILLIN
     Indication: SINUSITIS
     Dosage: 1 DF, TWO TIMES A DAY
     Route: 048
  2. CARVEDILOL. [Concomitant]
     Active Substance: CARVEDILOL
     Indication: PRODUCT USED FOR UNKNOWN INDICATION
     Dosage: 12.5 MG, TWO TIMES A DAY
     Route: 048

REACTIONS (10)
  - Respiratory failure [Not Recovered/Not Resolved]
  - Angioedema [Not Recovered/Not Resolved]
  - Status epilepticus [Not Recovered/Not Resolved]
  - Hypothermia [Not Recovered/Not Resolved]
  - Anaphylactic shock [Not Recovered/Not Resolved]
  - Death [Fatal]
  - Anaphylactic reaction [Not Recovered/Not Resolved]
  - Cardiac arrest [Not Recovered/Not Resolved]
  - Pulseless electrical activity [Not Recovered/Not Resolved]
  - Brain injury [Not Recovered/Not Resolved]
